FAERS Safety Report 8857655 (Version 1)
Quarter: 2012Q4

REPORT INFORMATION
  Report Type: 
  Country: US (occurrence: US)
  Receive Date: 20121024
  Receipt Date: 20121024
  Transmission Date: 20130627
  Serious: Yes (Other)
  Sender: FDA-Public Use
  Company Number: US-VERTEX PHARMACEUTICAL INC.-2012-023070

PATIENT
  Age: 59 Year
  Sex: Male
  Weight: 106.9 kg

DRUGS (12)
  1. VX-950 [Suspect]
     Indication: HEPATITIS C
     Dosage: 1125 mg, bid
     Route: 048
     Dates: start: 20120911, end: 20121015
  2. VX-950 [Suspect]
     Dosage: UNK
  3. Z-PEGYLATED INTERFERON-2A [Suspect]
     Dosage: 180 micrograms weekly
     Route: 058
     Dates: start: 20120911, end: 20121015
  4. RIBAVIRIN [Suspect]
     Dosage: 600 mg, qd
     Route: 048
     Dates: start: 20120911, end: 20120924
  5. RIBAVIRIN [Suspect]
     Dosage: 1000 mg, qd
     Route: 048
     Dates: start: 20120925, end: 20120928
  6. RIBAVIRIN [Suspect]
     Dosage: 1200 mg, qd
     Route: 048
     Dates: start: 20120929, end: 20121015
  7. LOPROX [Concomitant]
     Dosage: 1 UNK, bid
     Dates: start: 20120917, end: 20120920
  8. OXYCODONE [Concomitant]
     Dosage: 15 mg, qid
     Dates: start: 20120824
  9. TACROLIMUS [Concomitant]
     Dosage: 0.5 mg, UNK
     Dates: start: 20120903
  10. HYDROXYZINE [Concomitant]
     Dosage: 10 mg, UNK
     Dates: start: 20120914, end: 20120920
  11. HYDROCORTISONE W/LIDOCAINE [Concomitant]
     Dosage: UNK
     Dates: start: 20120915, end: 20120920
  12. TRIAMCINOLONE [Concomitant]
     Dosage: UNK
     Dates: start: 20120920, end: 20120920

REACTIONS (2)
  - Blood creatine phosphokinase increased [Not Recovered/Not Resolved]
  - Muscular weakness [Not Recovered/Not Resolved]
